FAERS Safety Report 7816237-5 (Version None)
Quarter: 2011Q4

REPORT INFORMATION
  Report Type: 
  Country: None (occurrence: None)
  Receive Date: 20111016
  Receipt Date: 20111007
  Transmission Date: 20120403
  Serious: Yes (Death)
  Sender: FDA-Public Use
  Company Number: US-CELGENEUS-163-21880-11063094

PATIENT
  Sex: Male
  Weight: 84.898 kg

DRUGS (17)
  1. AMBIEN [Concomitant]
     Dosage: 5 MILLIGRAM
     Route: 065
  2. RED CELL BLOOD [Concomitant]
     Route: 041
  3. LASIX [Concomitant]
     Dosage: 20 MILLIGRAM
     Route: 065
  4. TOPROL-XL [Concomitant]
     Route: 065
  5. REVLIMID [Suspect]
     Dosage: 10 MILLIGRAM
     Route: 048
     Dates: start: 20110509, end: 20110620
  6. REVLIMID [Suspect]
     Indication: CYTOGENETIC ABNORMALITY
  7. MULTIPLE VITAMINS [Concomitant]
     Route: 065
  8. CELEXA [Concomitant]
     Dosage: 10 MILLIGRAM
     Route: 065
  9. LEVOTHYROXINE SODIUM [Concomitant]
     Dosage: 150 MICROGRAM
     Route: 065
  10. VASOTEC [Concomitant]
     Dosage: 5 MILLIGRAM
     Route: 065
  11. DESFERAL [Concomitant]
     Route: 065
  12. VIDAZA [Suspect]
     Dosage: 75 MILLIGRAM/SQ. METER
     Route: 058
     Dates: start: 20110509, end: 20110606
  13. ZOCOR [Concomitant]
     Dosage: 40 MILLIGRAM
     Route: 065
  14. ACYCLOVIR [Concomitant]
     Dosage: 800 MILLIGRAM
     Route: 065
  15. NEULASTA [Concomitant]
     Route: 065
  16. PLATELETS [Concomitant]
     Indication: TRANSFUSION
     Route: 041
  17. ZYLOPRIM [Concomitant]
     Dosage: 100 MILLIGRAM
     Route: 065

REACTIONS (2)
  - PANCYTOPENIA [None]
  - MYELODYSPLASTIC SYNDROME [None]
